FAERS Safety Report 6183441-4 (Version None)
Quarter: 2009Q2

REPORT INFORMATION
  Report Type: 
  Country: None (occurrence: None)
  Receive Date: 20090506
  Receipt Date: 20090429
  Transmission Date: 20091009
  Serious: Yes (Death)
  Sender: FDA-Public Use
  Company Number: 2009US001149

PATIENT
  Age: 45 Year
  Sex: Male

DRUGS (12)
  1. PROGRAF [Suspect]
     Indication: RENAL TRANSPLANT
     Dosage: 2 MG, BID
     Dates: start: 20030625, end: 20090408
  2. PREDNISONE TAB [Concomitant]
  3. CELLCEPT [Concomitant]
  4. SIMVASTATIN [Concomitant]
  5. LEVEMIR [Concomitant]
  6. OMEPRAZOLE [Concomitant]
  7. CARDIZEM [Concomitant]
  8. LISINOPRIL (LISINOPRIL DIHYDRATE) [Concomitant]
  9. CARVEDILOL [Concomitant]
  10. ASPIRIN [Concomitant]
  11. NOVOLOG [Concomitant]
  12. METOCLOPRAMIDE [Concomitant]

REACTIONS (1)
  - CARDIAC ARREST [None]
